FAERS Safety Report 9411034 (Version 1)
Quarter: 2013Q3

REPORT INFORMATION
  Report Type: Spontaneous
  Country: DE (occurrence: DE)
  Receive Date: 20130719
  Receipt Date: 20130719
  Transmission Date: 20140515
  Serious: Yes (Congenital Anomaly, Other)
  Sender: FDA-Public Use
  Company Number: DE-TEVA-418374GER

PATIENT
  Age: 1 Day
  Sex: Male

DRUGS (2)
  1. VALPROAT [Suspect]
     Route: 064
  2. FOLSAEURE [Concomitant]
     Route: 064

REACTIONS (8)
  - Ventricular septal defect [Unknown]
  - Congenital inguinal hernia [Unknown]
  - Deafness congenital [Not Recovered/Not Resolved]
  - Pectus excavatum [Not Recovered/Not Resolved]
  - Agitation neonatal [Recovered/Resolved]
  - Hypotonia neonatal [Not Recovered/Not Resolved]
  - Motor developmental delay [Not Recovered/Not Resolved]
  - Foot deformity [Not Recovered/Not Resolved]
